FAERS Safety Report 26008524 (Version 3)
Quarter: 2025Q4

REPORT INFORMATION
  Report Type: Report from Study
  Country: BR (occurrence: BR)
  Receive Date: 20251106
  Receipt Date: 20251210
  Transmission Date: 20260117
  Serious: Yes (Other)
  Sender: SANDOZ
  Company Number: BR-SANDOZ-SDZ2025BR082478

PATIENT
  Sex: Female

DRUGS (6)
  1. DUPIXENT [Suspect]
     Active Substance: DUPILUMAB
     Indication: Product used for unknown indication
     Dosage: UNK
     Route: 058
  2. OMNITROPE [Suspect]
     Active Substance: SOMATROPIN
     Dosage: 1.2 MG, QD (1.2 EVERYDAY)
     Route: 058
  3. OMNITROPE [Suspect]
     Active Substance: SOMATROPIN
     Indication: Product used for unknown indication
     Dosage: 10 MG
     Route: 058
     Dates: start: 20251013, end: 20251026
  4. OMNITROPE [Suspect]
     Active Substance: SOMATROPIN
     Dosage: UNK
     Route: 065
     Dates: start: 20250831
  5. OMNITROPE [Suspect]
     Active Substance: SOMATROPIN
     Dosage: UNK
     Route: 065
     Dates: start: 20251013, end: 20251019
  6. OMNITROPE [Suspect]
     Active Substance: SOMATROPIN
     Dosage: UNK
     Route: 065
     Dates: start: 20251024, end: 20251026

REACTIONS (11)
  - Syncope [Recovering/Resolving]
  - Insomnia [Unknown]
  - Feeling hot [Not Recovered/Not Resolved]
  - Suffocation feeling [Unknown]
  - Headache [Unknown]
  - Injection site pain [Not Recovered/Not Resolved]
  - Product dose omission issue [Unknown]
  - Product availability issue [Unknown]
  - Circumstance or information capable of leading to medication error [Unknown]
  - Therapy interrupted [Unknown]
  - Therapy change [Unknown]

NARRATIVE: CASE EVENT DATE: 20250101
